FAERS Safety Report 17911590 (Version 2)
Quarter: 2020Q2

REPORT INFORMATION
  Report Type: Spontaneous
  Country: US (occurrence: US)
  Receive Date: 20200618
  Receipt Date: 20200619
  Transmission Date: 20200714
  Serious: No
  Sender: FDA-Public Use
  Company Number: US-PFIZER INC-2018168052

PATIENT
  Age: 69 Year
  Sex: Female

DRUGS (4)
  1. VFEND [Suspect]
     Active Substance: VORICONAZOLE
     Indication: COUGH
     Dosage: 400 MG, 2X/DAY
     Route: 048
     Dates: start: 2018, end: 2020
  2. VFEND [Suspect]
     Active Substance: VORICONAZOLE
     Indication: PENICILLIUM INFECTION
     Dosage: 200 MG, 2X/DAY
     Route: 048
     Dates: start: 2018
  3. VFEND [Suspect]
     Active Substance: VORICONAZOLE
     Indication: PNEUMONIA
     Dosage: 200 MG, 2X/DAY
     Route: 048
     Dates: start: 20200407, end: 20200608
  4. VFEND [Suspect]
     Active Substance: VORICONAZOLE
     Indication: ASPERGILLUS INFECTION
     Dosage: 300 MG, 2X/DAY
     Route: 048
     Dates: start: 2018

REACTIONS (6)
  - Off label use [Unknown]
  - Drug level below therapeutic [Unknown]
  - Rash papular [Unknown]
  - Sensitive skin [Unknown]
  - Sunburn [Unknown]
  - Pruritus [Unknown]

NARRATIVE: CASE EVENT DATE: 2018
